FAERS Safety Report 7357121-3 (Version None)
Quarter: 2011Q1

REPORT INFORMATION
  Report Type: 
  Country: None (occurrence: None)
  Receive Date: 20110317
  Receipt Date: 20100908
  Transmission Date: 20110831
  Serious: Yes (Other)
  Sender: FDA-Public Use
  Company Number: US-BAYER-201018503NA

PATIENT
  Sex: Female
  Weight: 60.9 kg

DRUGS (18)
  1. DIFFERIN [Concomitant]
  2. SOTRET [Concomitant]
  3. NAPROXEN [Concomitant]
  4. YASMIN [Suspect]
     Indication: MENSTRUAL CYCLE MANAGEMENT
     Dosage: UNK UNK, QD
     Route: 048
     Dates: start: 20010401, end: 20090101
  5. SPIRONOLACTONE [Concomitant]
     Dosage: UNK
     Dates: start: 20000301, end: 20060501
  6. IBUPROFEN [Concomitant]
  7. DOXYCYCLINE [Concomitant]
  8. LUSTRA [Concomitant]
  9. YASMIN [Suspect]
     Indication: CONTRACEPTION
  10. YASMIN [Suspect]
     Indication: ACNE
  11. AMBIEN [Concomitant]
  12. OCELLA [Suspect]
     Indication: ACNE
     Dosage: UNK UNK, QD
     Dates: start: 20010401, end: 20081201
  13. CYCLOBENZAPRINE [Concomitant]
  14. NYSTATIN [Concomitant]
  15. OCELLA [Suspect]
     Indication: MENSTRUAL CYCLE MANAGEMENT
  16. UNCODEABLE ^UNCLASSIFIABLE^ [Concomitant]
  17. RESPIRATORY SYSTEM [Concomitant]
     Indication: PRODUCT USED FOR UNKNOWN INDICATION
  18. CITALOPRAM HYDROBROMIDE [Concomitant]

REACTIONS (3)
  - THROMBOSIS [None]
  - DEEP VEIN THROMBOSIS [None]
  - PAIN [None]
